FAERS Safety Report 8863969 (Version 1)
Quarter: 2012Q4

REPORT INFORMATION
  Report Type: 
  Country: US (occurrence: US)
  Receive Date: 20121024
  Receipt Date: 20121024
  Transmission Date: 20130627
  Serious: No
  Sender: FDA-Public Use
  Company Number: US-AMGEN-USASP2011065040

PATIENT
  Age: 51 Year
  Sex: Female

DRUGS (13)
  1. ENBREL [Suspect]
     Indication: PRODUCT USED FOR UNKNOWN INDICATION
     Dosage: 50 mg, qwk
  2. METFORMIN [Concomitant]
     Dosage: 500 mg, UNK
  3. LORATADINE [Concomitant]
     Dosage: 240 mg, UNK
  4. MULTIVITAMIN                       /00097801/ [Concomitant]
  5. PRILOSEC                           /00661201/ [Concomitant]
     Dosage: 10 mg, UNK
  6. LOSARTAN [Concomitant]
     Dosage: 100 mg, UNK
  7. IRON [Concomitant]
  8. VITAMIN D3 [Concomitant]
  9. FISH OIL [Concomitant]
  10. CYCLOBENZAPRINE [Concomitant]
     Dosage: 30 mg, UNK
  11. NYSTATIN W/TRIAMCINOLONE           /00945901/ [Concomitant]
  12. CALCIPOTRIENE [Concomitant]
  13. TYLENOL ARTHRITIS [Concomitant]
     Dosage: 650 mg, UNK

REACTIONS (2)
  - Skin irritation [Unknown]
  - Erythema [Unknown]
